FAERS Safety Report 7549056-8 (Version None)
Quarter: 2011Q2

REPORT INFORMATION
  Report Type: 
  Country: None (occurrence: None)
  Receive Date: 20110615
  Receipt Date: 20110606
  Transmission Date: 20111010
  Serious: Yes (Death, Other)
  Sender: FDA-Public Use
  Company Number: ES-ROCHE-781211

PATIENT

DRUGS (3)
  1. CAPECITABINE [Suspect]
     Indication: GASTROOESOPHAGEAL CANCER
     Dosage: FREQUENCY: ON DAYS 1-14 OF 21 DAYS CYCLE
     Route: 065
  2. TELATINIB [Suspect]
     Indication: GASTROOESOPHAGEAL CANCER
     Dosage: FREQUENCY: ON DAYS 1-14 OF A 21 DAYS CYCLE
     Route: 065
  3. CISPLATIN [Suspect]
     Indication: GASTROOESOPHAGEAL CANCER
     Dosage: FREQUENCY: ON DAY 1 OF THE FIRST SIX CYCLES.
     Route: 065

REACTIONS (6)
  - PULMONARY EMBOLISM [None]
  - ASTHENIA [None]
  - PALMAR-PLANTAR ERYTHRODYSAESTHESIA SYNDROME [None]
  - HYPERTENSION [None]
  - ABDOMINAL PAIN [None]
  - DIARRHOEA [None]
